FAERS Safety Report 15462555 (Version 3)
Quarter: 2018Q4

REPORT INFORMATION
  Report Type: Report from Study
  Country: CA (occurrence: CA)
  Receive Date: 20181004
  Receipt Date: 20181018
  Transmission Date: 20190204
  Serious: No
  Sender: FDA-Public Use
  Company Number: CA-ROCHE-2191441

PATIENT
  Age: 42 Year
  Sex: Male

DRUGS (2)
  1. PREGABALIN. [Concomitant]
     Active Substance: PREGABALIN
     Dosage: 75 MG TWICE DAILY ;ONGOING: YES?FOR SYMPTOMS OF MS
     Route: 048
     Dates: start: 2016
  2. OCREVUS [Suspect]
     Active Substance: OCRELIZUMAB
     Indication: RELAPSING-REMITTING MULTIPLE SCLEROSIS
     Dosage: 300 MG AT DAY 0, 300 MG AT DAY 14 AND THEN 600 MG
     Route: 042
     Dates: start: 20180919

REACTIONS (4)
  - Diarrhoea [Recovered/Resolved]
  - Influenza [Unknown]
  - Cough [Recovering/Resolving]
  - Nasopharyngitis [Recovering/Resolving]

NARRATIVE: CASE EVENT DATE: 20180924
